FAERS Safety Report 5537882-6 (Version None)
Quarter: 2007Q4

REPORT INFORMATION
  Report Type: 
  Country: None (occurrence: None)
  Receive Date: 20071207
  Receipt Date: 20071130
  Transmission Date: 20080405
  Serious: Yes (Hospitalization)
  Sender: FDA-Public Use
  Company Number: CH-PFIZER INC-2007090146

PATIENT
  Sex: Female
  Weight: 83 kg

DRUGS (2)
  1. CHAMPIX [Suspect]
     Route: 048
  2. REBIF [Suspect]
     Route: 058

REACTIONS (1)
  - ERYSIPELAS [None]
